FAERS Safety Report 6213841-5 (Version None)
Quarter: 2009Q2

REPORT INFORMATION
  Report Type: 
  Country: None (occurrence: None)
  Receive Date: 20090601
  Receipt Date: 20090601
  Transmission Date: 20091009
  Serious: Yes (Other)
  Sender: FDA-Public Use
  Company Number: None

PATIENT
  Age: 46 Year
  Sex: Female
  Weight: 56.6996 kg

DRUGS (2)
  1. SINGULAIR [Suspect]
     Indication: MULTIPLE ALLERGIES
     Dosage: ONE PER DAY AT NIGHT
     Dates: start: 20090524, end: 20090531
  2. SINGULAIR [Suspect]
     Indication: MULTIPLE ALLERGIES
     Dosage: ONE PER DAY AT NIGHT
     Dates: start: 20090531, end: 20090531

REACTIONS (2)
  - CONTUSION [None]
  - RASH PRURITIC [None]
